FAERS Safety Report 10462637 (Version 1)
Quarter: 2014Q3

REPORT INFORMATION
  Report Type: Spontaneous
  Country: US (occurrence: US)
  Receive Date: 20140918
  Receipt Date: 20140918
  Transmission Date: 20150326
  Serious: Yes (Death)
  Sender: FDA-Public Use
  Company Number: US-BAUSCH-BL-2014-005311

PATIENT
  Age: 78 Year
  Sex: Female

DRUGS (1)
  1. XENAZINE [Suspect]
     Active Substance: TETRABENAZINE
     Indication: DYSKINESIA
     Route: 048
     Dates: start: 20110504, end: 20140707

REACTIONS (2)
  - Death [Fatal]
  - Off label use [Fatal]

NARRATIVE: CASE EVENT DATE: 20110504
